FAERS Safety Report 4338029-4 (Version None)
Quarter: 2004Q2

REPORT INFORMATION
  Report Type: 
  Country: None (occurrence: None)
  Receive Date: 20040407
  Receipt Date: 20040330
  Transmission Date: 20050107
  Serious: Yes (Hospitalization)
  Sender: FDA-Public Use
  Company Number: 2002088689HU

PATIENT
  Age: 61 Year
  Sex: Female

DRUGS (8)
  1. CAMPTOSAR [Suspect]
     Indication: COLON CANCER
     Dosage: 300 MG, CYCLIC, IV
     Route: 042
     Dates: start: 20010917, end: 20011001
  2. CAMPTOSAR [Suspect]
     Indication: COLON CANCER
     Dosage: 300 MG, CYCLIC, IV
     Route: 042
     Dates: start: 20011015, end: 20011227
  3. FLUOROURACIL [Suspect]
     Indication: COLON CANCER
     Dosage: 1650 MG, CYCLIC, IV
     Route: 042
     Dates: start: 20010917, end: 20011227
  4. LEUCOVORIN CALCIUM [Suspect]
     Indication: COLON CANCER
     Dosage: 330 MG, CYCLIC, IV
     Route: 042
     Dates: start: 20010917, end: 20011227
  5. RENITEC [Concomitant]
  6. BRINALDIX (CLOPAMIDE) [Concomitant]
  7. BETALOL [Concomitant]
  8. PHYSIOTENS ^SOLVAY^ (MOXONIDINE) [Concomitant]

REACTIONS (1)
  - DEEP VEIN THROMBOSIS [None]
